FAERS Safety Report 8476627-7 (Version None)
Quarter: 2012Q2

REPORT INFORMATION
  Report Type: 
  Country: None (occurrence: None)
  Receive Date: 20120628
  Receipt Date: 20120618
  Transmission Date: 20120825
  Serious: Yes (Hospitalization)
  Sender: FDA-Public Use
  Company Number: FI-TEVA-344625ISR

PATIENT
  Sex: Female

DRUGS (1)
  1. DOXYCYCLINE [Suspect]
     Indication: SINUSITIS
     Route: 048
     Dates: start: 20120305, end: 20120307

REACTIONS (4)
  - VISUAL IMPAIRMENT [None]
  - RETINAL TEAR [None]
  - HEADACHE [None]
  - PAIN [None]
